FAERS Safety Report 6071250-6 (Version None)
Quarter: 2009Q1

REPORT INFORMATION
  Report Type: 
  Country: None (occurrence: None)
  Receive Date: 20090204
  Receipt Date: 20090128
  Transmission Date: 20090719
  Serious: Yes (Disabling)
  Sender: FDA-Public Use
  Company Number: GXKR2009GB01260

PATIENT
  Age: 55 Year
  Sex: Male
  Weight: 94.5 kg

DRUGS (2)
  1. SIMVASTATIN [Suspect]
     Indication: BLOOD TRIGLYCERIDES INCREASED
     Dosage: 40 MG, ORAL
     Route: 048
     Dates: start: 20081101, end: 20081201
  2. ATORVASTATIN CALCIUM [Suspect]
     Indication: BLOOD TRIGLYCERIDES INCREASED
     Dosage: 20 MG, ORAL
     Route: 048
     Dates: start: 20081201, end: 20081231

REACTIONS (5)
  - ABNORMAL DREAMS [None]
  - HYPERSOMNIA [None]
  - LISTLESS [None]
  - PRURITUS [None]
  - SKIN EXFOLIATION [None]
